FAERS Safety Report 7107398-4 (Version None)
Quarter: 2010Q4

REPORT INFORMATION
  Report Type: 
  Country: None (occurrence: None)
  Receive Date: 20101111
  Receipt Date: 20101111
  Transmission Date: 20110411
  Serious: No
  Sender: FDA-Public Use
  Company Number: None

PATIENT
  Sex: Female
  Weight: 47.2 kg

DRUGS (1)
  1. RECLAST [Suspect]
     Dosage: 5MG 1 X YEAR IV
     Route: 042
     Dates: start: 20100802, end: 20100802

REACTIONS (2)
  - BONE SWELLING [None]
  - PAIN IN JAW [None]
